FAERS Safety Report 9508962 (Version 2)
Quarter: 2013Q3

REPORT INFORMATION
  Report Type: Spontaneous
  Country: US (occurrence: US)
  Receive Date: 20130909
  Receipt Date: 20130911
  Transmission Date: 20140515
  Serious: Yes (Hospitalization)
  Sender: FDA-Public Use
  Company Number: US-BRISTOL-MYERS SQUIBB COMPANY-19068006

PATIENT
  Age: 67 Year
  Sex: Male

DRUGS (2)
  1. ABILIFY [Suspect]
     Indication: SCHIZOPHRENIA
     Dosage: DOSE INC TO 5MG.
     Route: 048
     Dates: start: 201301, end: 201306
  2. ABILIFY [Suspect]
     Indication: AUTISM SPECTRUM DISORDER
     Dosage: DOSE INC TO 5MG.
     Route: 048
     Dates: start: 201301, end: 201306

REACTIONS (3)
  - Neuroleptic malignant syndrome [Recovered/Resolved]
  - Fall [Unknown]
  - Hip fracture [Unknown]
